FAERS Safety Report 7984045-0 (Version None)
Quarter: 2011Q4

REPORT INFORMATION
  Report Type: 
  Country: None (occurrence: None)
  Receive Date: 20111216
  Receipt Date: 20111212
  Transmission Date: 20120403
  Serious: Yes (Hospitalization, Congenital Anomaly)
  Sender: FDA-Public Use
  Company Number: DE-PFIZER INC-K201101227

PATIENT

DRUGS (7)
  1. ENOXAPARIN [Concomitant]
     Indication: PULMONARY EMBOLISM
     Dosage: UNK
     Dates: start: 20110114
  2. TORSEMIDE [Suspect]
     Dosage: UNK
     Route: 064
     Dates: end: 20110126
  3. CYCLOSPORINE [Suspect]
     Dosage: 150 MG, 2X/DAY
     Route: 064
  4. RAMIPRIL [Suspect]
     Dosage: UNK
     Route: 064
     Dates: end: 20110126
  5. ENOXAPARIN SODIUM [Concomitant]
     Dosage: UNK
     Dates: start: 20110114
  6. PREDNISOLONE [Concomitant]
     Dosage: UNK
  7. PHENPROCOUMON [Suspect]
     Dosage: 3 MG, 2X/DAY
     Route: 064
     Dates: end: 20110113

REACTIONS (5)
  - ABORTION INDUCED [None]
  - MATERNAL EXPOSURE DURING PREGNANCY [None]
  - HEART DISEASE CONGENITAL [None]
  - MATERNAL DRUGS AFFECTING FOETUS [None]
  - FALLOT'S TETRALOGY [None]
